FAERS Safety Report 8515622-6 (Version None)
Quarter: 2012Q3

REPORT INFORMATION
  Report Type: 
  Country: None (occurrence: None)
  Receive Date: 20120717
  Receipt Date: 20120712
  Transmission Date: 20120928
  Serious: Yes (Other)
  Sender: FDA-Public Use
  Company Number: PHEH2012US013705

PATIENT
  Sex: Male

DRUGS (8)
  1. THYROID TAB [Concomitant]
  2. DOXAZOSIN MESYLATE [Concomitant]
  3. BICARBONATE [Concomitant]
  4. D2 [Concomitant]
  5. VALTURNA [Suspect]
     Dosage: 1 DF, QD
     Dates: start: 20090101
  6. VITAMIN D [Concomitant]
  7. OMEPRAZOLE [Concomitant]
  8. HYDROCHLOROTHIAZIDE [Concomitant]

REACTIONS (3)
  - RENAL DISORDER [None]
  - RENAL IMPAIRMENT [None]
  - BLOOD CREATINE INCREASED [None]
